FAERS Safety Report 9013066 (Version 2)
Quarter: 2013Q1

REPORT INFORMATION
  Report Type: Spontaneous
  Country: JP (occurrence: JP)
  Receive Date: 20130115
  Receipt Date: 20130120
  Transmission Date: 20140127
  Serious: Yes (Death, Life-Threatening, Hospitalization)
  Sender: FDA-Public Use
  Company Number: JP-009507513-1301JPN005419

PATIENT
  Age: 58 Year
  Sex: Male
  Weight: 64 kg

DRUGS (1)
  1. INTRONA [Suspect]
     Indication: RENAL CANCER METASTATIC
     Dosage: DOSAGE IS UNCERTAIN DURING A DAY
     Route: 030
     Dates: start: 2006

REACTIONS (4)
  - Bronchopulmonary aspergillosis [Fatal]
  - Type 1 diabetes mellitus [Unknown]
  - Pneumonia staphylococcal [Unknown]
  - Pneumonia [Unknown]
